FAERS Safety Report 21527453 (Version 1)
Quarter: 2022Q4

REPORT INFORMATION
  Report Type: Spontaneous
  Country: AU (occurrence: AU)
  Receive Date: 20221031
  Receipt Date: 20221031
  Transmission Date: 20230112
  Serious: Yes (Other)
  Sender: FDA-Public Use
  Company Number: None

PATIENT
  Sex: Female

DRUGS (2)
  1. ADALIMUMAB [Suspect]
     Active Substance: ADALIMUMAB
     Indication: Psoriatic arthropathy
     Dosage: NUMBER OF 12 UNIT WEEKLY, INCREASE DOSING FREQUENCY TO WEEKLY, INJECTION NOS
     Route: 065
  2. HYRIMOZ [Suspect]
     Active Substance: ADALIMUMAB-ADAZ
     Indication: Psoriatic arthropathy
     Dosage: PRE-FILLED SYRINGE PLUS X100L, UNKNOWN
     Route: 065

REACTIONS (2)
  - Psoriatic arthropathy [Unknown]
  - Product use issue [Unknown]
